FAERS Safety Report 5679050-3 (Version None)
Quarter: 2008Q1

REPORT INFORMATION
  Report Type: 
  Country: None (occurrence: None)
  Receive Date: 20080324
  Receipt Date: 20080324
  Transmission Date: 20080703
  Serious: No
  Sender: FDA-Public Use
  Company Number: None

PATIENT
  Age: 51 Year
  Sex: Male

DRUGS (1)
  1. ADDERALL 10 [Suspect]
     Dosage: CAPSULE, EXTENDED RELEASE

REACTIONS (4)
  - BLOOD PRESSURE FLUCTUATION [None]
  - DRUG PRESCRIBING ERROR [None]
  - HYPERTENSIVE CRISIS [None]
  - MEDICATION ERROR [None]
